FAERS Safety Report 8624240-0 (Version None)
Quarter: 2012Q3

REPORT INFORMATION
  Report Type: 
  Country: None (occurrence: None)
  Receive Date: 20120827
  Receipt Date: 20120816
  Transmission Date: 20120928
  Serious: Yes (Other)
  Sender: FDA-Public Use
  Company Number: CN-ASTRAZENECA-2012SE60580

PATIENT
  Sex: Female
  Weight: 55.8 kg

DRUGS (4)
  1. PULMICORT [Suspect]
     Indication: ASTHMA
     Route: 055
     Dates: start: 20110501, end: 20110530
  2. PULMICORT [Suspect]
     Indication: BRONCHITIS CHRONIC
     Route: 055
     Dates: start: 20110501, end: 20110530
  3. TERBUTALINE SULFATE [Suspect]
     Indication: BRONCHITIS CHRONIC
     Route: 055
     Dates: start: 20110501, end: 20120530
  4. TERBUTALINE SULFATE [Suspect]
     Indication: ASTHMA
     Route: 055
     Dates: start: 20110501, end: 20120530

REACTIONS (2)
  - DRUG INEFFECTIVE [None]
  - ASTHMA [None]
